FAERS Safety Report 5958495-8 (Version None)
Quarter: 2008Q4

REPORT INFORMATION
  Report Type: 
  Country: None (occurrence: None)
  Receive Date: 20081119
  Receipt Date: 20081110
  Transmission Date: 20090506
  Serious: Yes (Other)
  Sender: FDA-Public Use
  Company Number: US-AMGEN-QUU318265

PATIENT
  Sex: Female

DRUGS (4)
  1. ENBREL [Suspect]
     Indication: RHEUMATOID ARTHRITIS
     Route: 058
     Dates: start: 20060321
  2. PROCRIT [Suspect]
     Indication: DRUG USE FOR UNKNOWN INDICATION
     Dates: start: 20080101
  3. PLAQUENIL [Concomitant]
     Route: 048
  4. METHOTREXATE [Concomitant]

REACTIONS (9)
  - ARTHROPATHY [None]
  - CARDIO-RESPIRATORY ARREST [None]
  - FALL [None]
  - INFLUENZA LIKE ILLNESS [None]
  - PAIN [None]
  - RHEUMATOID NODULE [None]
  - RIB FRACTURE [None]
  - THERMAL BURN [None]
  - URINARY TRACT INFECTION [None]
